FAERS Safety Report 17122992 (Version 1)
Quarter: 2019Q4

REPORT INFORMATION
  Report Type: Spontaneous
  Country: US (occurrence: US)
  Receive Date: 20191206
  Receipt Date: 20191206
  Transmission Date: 20200122
  Serious: No
  Sender: FDA-Public Use
  Company Number: US-PERRIGO-19US013099

PATIENT
  Age: 58 Year
  Sex: Female
  Weight: 109.75 kg

DRUGS (1)
  1. TRIAMCINOLONE ACETONIDE. [Suspect]
     Active Substance: TRIAMCINOLONE ACETONIDE
     Indication: PSORIASIS
     Dosage: 1 APPLICATION, 1 TO 2 TIMES DAILY, 2 TO 3 TIMES WEEKLY, PRN
     Route: 061
     Dates: start: 201909, end: 20191016

REACTIONS (3)
  - Application site scar [Not Recovered/Not Resolved]
  - Product dispensing error [Recovered/Resolved]
  - Application site discolouration [Not Recovered/Not Resolved]

NARRATIVE: CASE EVENT DATE: 201909
